FAERS Safety Report 18586680 (Version 1)
Quarter: 2020Q4

REPORT INFORMATION
  Report Type: Spontaneous
  Country: US (occurrence: US)
  Receive Date: 20201204
  Receipt Date: 20201204
  Transmission Date: 20210114
  Serious: Yes (Hospitalization)
  Sender: FDA-Public Use
  Company Number: None

PATIENT
  Sex: Male
  Weight: 79.5 kg

DRUGS (1)
  1. CISPLATIN. [Suspect]
     Active Substance: CISPLATIN
     Dates: end: 20201103

REACTIONS (5)
  - Staphylococcal infection [None]
  - Cardiac ventricular disorder [None]
  - Echocardiogram abnormal [None]
  - Cerebral cyst [None]
  - Septic embolus [None]

NARRATIVE: CASE EVENT DATE: 20201111
